FAERS Safety Report 20215997 (Version 1)
Quarter: 2021Q4

REPORT INFORMATION
  Report Type: Report from Study
  Country: US (occurrence: None)
  Receive Date: 20211222
  Receipt Date: 20211222
  Transmission Date: 20220303
  Serious: Yes (Death)
  Sender: FDA-Public Use
  Company Number: 2021A886078

PATIENT
  Sex: Male
  Weight: 110.2 kg

DRUGS (24)
  1. CALQUENCE [Suspect]
     Active Substance: ACALABRUTINIB
     Indication: Mantle cell lymphoma
     Route: 048
  2. CILOSTAZOL [Concomitant]
     Active Substance: CILOSTAZOL
  3. VITAMIN B12 [Concomitant]
     Active Substance: CYANOCOBALAMIN
  4. DULOXETINE [Concomitant]
     Active Substance: DULOXETINE
  5. GLIPIZIDE [Concomitant]
     Active Substance: GLIPIZIDE
  6. IMBRUVICA [Concomitant]
     Active Substance: IBRUTINIB
  7. LISINOPRIL [Concomitant]
     Active Substance: LISINOPRIL
  8. METOPROLOL [Concomitant]
     Active Substance: METOPROLOL
  9. NOVOLOG [Concomitant]
     Active Substance: INSULIN ASPART
  10. KLOR-CON [Concomitant]
     Active Substance: POTASSIUM CHLORIDE
  11. CRESTOR [Concomitant]
     Active Substance: ROSUVASTATIN CALCIUM
  12. LEVEMIR [Concomitant]
     Active Substance: INSULIN DETEMIR
  13. XARELTO [Concomitant]
     Active Substance: RIVAROXABAN
  14. PROAIR HFA [Concomitant]
     Active Substance: ALBUTEROL SULFATE
  15. AMIODARONE [Concomitant]
     Active Substance: AMIODARONE
  16. BUMETANIDE [Concomitant]
     Active Substance: BUMETANIDE
  17. TUMS [Concomitant]
     Active Substance: CALCIUM CARBONATE
  18. GABAPENTIN [Concomitant]
     Active Substance: GABAPENTIN
  19. NORCO [Concomitant]
     Active Substance: ACETAMINOPHEN\HYDROCODONE BITARTRATE
  20. LANTUS [Concomitant]
     Active Substance: INSULIN GLARGINE
  21. HUMALOG [Concomitant]
     Active Substance: INSULIN LISPRO
  22. LOPERAMIDE [Concomitant]
     Active Substance: LOPERAMIDE
  23. ACTOS [Concomitant]
     Active Substance: PIOGLITAZONE HYDROCHLORIDE
  24. TAMSULOSIN [Concomitant]
     Active Substance: TAMSULOSIN

REACTIONS (1)
  - Death [Fatal]
